FAERS Safety Report 7637556-1 (Version None)
Quarter: 2011Q3

REPORT INFORMATION
  Report Type: 
  Country: None (occurrence: None)
  Receive Date: 20110726
  Receipt Date: 20110719
  Transmission Date: 20111222
  Serious: No
  Sender: FDA-Public Use
  Company Number: US-PFIZER INC-2011163981

PATIENT
  Sex: Female
  Weight: 48 kg

DRUGS (3)
  1. ESTRING [Suspect]
     Indication: VULVOVAGINAL DRYNESS
     Dosage: 2 MG, UNK
     Route: 067
     Dates: end: 20110713
  2. ALDARA [Concomitant]
     Indication: VULVAL DISORDER
     Dosage: UNK
  3. COMBIPATCH [Concomitant]
     Dosage: 50/140 UNK, UNK

REACTIONS (3)
  - VULVOVAGINAL DISCOMFORT [None]
  - BLOOD TRIGLYCERIDES INCREASED [None]
  - DRUG INEFFECTIVE [None]
